FAERS Safety Report 6277865-4 (Version None)
Quarter: 2009Q3

REPORT INFORMATION
  Report Type: 
  Country: None (occurrence: None)
  Receive Date: 20090722
  Receipt Date: 20090708
  Transmission Date: 20100115
  Serious: Yes (Death, Hospitalization)
  Sender: FDA-Public Use
  Company Number: US-ROCHE-628922

PATIENT
  Sex: Female

DRUGS (6)
  1. PEGASYS [Suspect]
     Dosage: FORM: PRE FILLED SYRINGE
     Route: 058
     Dates: start: 20090417, end: 20090626
  2. COPEGUS [Suspect]
     Dosage: FORM: PILL, DOSE REPORTED AS: 3 PILLS AM AND 3 IN PM
     Route: 048
     Dates: start: 20090417, end: 20090626
  3. XANAX [Concomitant]
     Indication: DEPRESSION
     Dosage: XANAX ADDICTION
     Route: 048
  4. ATRIPLA [Concomitant]
     Route: 048
  5. LORCET-HD [Concomitant]
     Indication: PAIN
     Dosage: DRUG NAME: LORCET
  6. ZITHROMAX [Concomitant]
     Indication: INFECTION
     Route: 048

REACTIONS (13)
  - ABDOMINAL PAIN [None]
  - ANXIETY [None]
  - BREAST TENDERNESS [None]
  - BRONCHITIS [None]
  - DEATH [None]
  - DEPRESSION [None]
  - ESCHERICHIA INFECTION [None]
  - FATIGUE [None]
  - MENSTRUATION DELAYED [None]
  - MOOD SWINGS [None]
  - OVARIAN CYST [None]
  - VISION BLURRED [None]
  - WHITE BLOOD CELL COUNT DECREASED [None]
